FAERS Safety Report 5284978-2 (Version None)
Quarter: 2007Q1

REPORT INFORMATION
  Report Type: 
  Country: None (occurrence: None)
  Receive Date: 20061226
  Receipt Date: 20060623
  Transmission Date: 20070707
  Serious: Yes (Life-Threatening, Hospitalization, Other)
  Sender: FDA-Public Use
  Company Number: WAES 0606USA05143

PATIENT
  Age: 63 Year
  Sex: Male
  Weight: 99.7913 kg

DRUGS (6)
  1. ZETIA [Suspect]
     Indication: DYSLIPIDAEMIA
     Dosage: 10 MG/DAILY/PO
     Route: 048
     Dates: start: 20051101, end: 20060621
  2. PRAVACHOL [Suspect]
     Indication: DYSLIPIDAEMIA
     Dosage: 40 MG/DAILY/PO
     Route: 048
  3. ADALAT CC [Concomitant]
  4. FLOMAX (MORNIFLUMATE) [Concomitant]
  5. ASPIRIN [Concomitant]
  6. BENZONATATE [Concomitant]

REACTIONS (2)
  - DYSPHONIA [None]
  - SWOLLEN TONGUE [None]
